FAERS Safety Report 10249217 (Version 1)
Quarter: 2014Q2

REPORT INFORMATION
  Report Type: Spontaneous
  Country: US (occurrence: None)
  Receive Date: 20140618
  Receipt Date: 20140618
  Transmission Date: 20141212
  Serious: Yes (Life-Threatening)
  Sender: FDA-Public Use
  Company Number: 2390068

PATIENT
  Age: 68 Year
  Sex: Male

DRUGS (1)
  1. DOBUTAMINE HYDROCHLORIDE [Suspect]
     Indication: STRESS ECHOCARDIOGRAM

REACTIONS (2)
  - Haemorrhage intracranial [None]
  - General physical health deterioration [None]
